FAERS Safety Report 9639014 (Version 1)
Quarter: 2013Q4

REPORT INFORMATION
  Report Type: Spontaneous
  Country: FR (occurrence: FR)
  Receive Date: 20131022
  Receipt Date: 20131022
  Transmission Date: 20140711
  Serious: Yes (Other)
  Sender: FDA-Public Use
  Company Number: FR-ABBVIE-13P-056-1160070-00

PATIENT
  Age: 62 Year
  Sex: Male

DRUGS (1)
  1. TARKA [Suspect]
     Indication: HYPERTENSION
     Route: 048
     Dates: start: 20130601, end: 20130612

REACTIONS (11)
  - Asthenia [Not Recovered/Not Resolved]
  - Eosinophilic cellulitis [Unknown]
  - Lichenoid keratosis [Unknown]
  - Toxic skin eruption [Unknown]
  - Hepatocellular injury [Recovered/Resolved]
  - Pyrexia [Recovered/Resolved]
  - Rash macular [Recovered/Resolved]
  - Gamma-glutamyltransferase increased [Recovered/Resolved]
  - Serum ferritin increased [Unknown]
  - Rash pruritic [Recovering/Resolving]
  - Rash macular [Recovering/Resolving]
